FAERS Safety Report 19094744 (Version 1)
Quarter: 2021Q2

REPORT INFORMATION
  Report Type: Other
  Country: FR (occurrence: FR)
  Receive Date: 20210405
  Receipt Date: 20210405
  Transmission Date: 20210717
  Serious: Yes (Other)
  Sender: FDA-Public Use
  Company Number: FR-VALIDUS PHARMACEUTICALS LLC-FR-2021VAL001007

PATIENT
  Age: 81 Year
  Sex: Female

DRUGS (3)
  1. FUROSEMIDE. [Suspect]
     Active Substance: FUROSEMIDE
     Indication: HYPERTENSION
     Dosage: 40 MG, QD
     Route: 058
     Dates: start: 20181231
  2. OXYCODONE [Suspect]
     Active Substance: OXYCODONE
     Indication: PAIN
     Dosage: 1 UNK, Q8H
     Route: 058
     Dates: start: 20181231
  3. LOVENOX [Suspect]
     Active Substance: ENOXAPARIN SODIUM
     Indication: COAGULOPATHY
     Dosage: H4000 IU, Q24D
     Route: 058
     Dates: start: 20190114

REACTIONS (2)
  - Administration site reaction [Not Recovered/Not Resolved]
  - Administration site necrosis [Not Recovered/Not Resolved]

NARRATIVE: CASE EVENT DATE: 20190123
